FAERS Safety Report 9301739 (Version 2)
Quarter: 2013Q4

REPORT INFORMATION
  Report Type: Spontaneous
  Country: GB (occurrence: GB)
  Receive Date: 20130521
  Receipt Date: 20131114
  Transmission Date: 20140711
  Serious: Yes (Disabling, Other)
  Sender: FDA-Public Use
  Company Number: GB-WATSON-2013-08467

PATIENT
  Age: 45 Year
  Sex: Female

DRUGS (5)
  1. LAMOTRIGINE (UNKNOWN) [Suspect]
     Indication: EPILEPSY
     Dosage: 25 MG, DAILY
     Route: 048
     Dates: start: 20121029
  2. LAMOTRIGINE (UNKNOWN) [Suspect]
     Dosage: 25 MG, BID
     Route: 048
  3. LAMOTRIGINE (UNKNOWN) [Suspect]
     Dosage: 75 MG, DAILY; 50MG IN THE MORNING AND 25 AT NIGHT
     Route: 048
     Dates: end: 20121123
  4. EPILIM CHRONO                      /01294701/ [Concomitant]
     Indication: EPILEPSY
     Dosage: 500 MG, BID. MODIFIED RELEASE.
     Route: 048
     Dates: start: 20091126
  5. EPILIM CHRONO                      /01294701/ [Concomitant]
     Dosage: 200 MG, BID. MODIFIED RELEASE.
     Route: 048
     Dates: start: 20120903

REACTIONS (4)
  - Drug reaction with eosinophilia and systemic symptoms [Not Recovered/Not Resolved]
  - Swelling face [Not Recovered/Not Resolved]
  - Flushing [Not Recovered/Not Resolved]
  - Erythema [Not Recovered/Not Resolved]
